FAERS Safety Report 8370520-6 (Version None)
Quarter: 2012Q2

REPORT INFORMATION
  Report Type: 
  Country: None (occurrence: None)
  Receive Date: 20120518
  Receipt Date: 20120515
  Transmission Date: 20120825
  Serious: Yes (Other)
  Sender: FDA-Public Use
  Company Number: US-PFIZER INC-2012022733

PATIENT
  Sex: Female
  Weight: 42.177 kg

DRUGS (3)
  1. LIPITOR [Suspect]
     Indication: CEREBROVASCULAR ACCIDENT
     Dosage: 10 MG, 1X/DAY
     Route: 048
     Dates: start: 20110729
  2. ACIPHEX [Concomitant]
     Indication: GASTROOESOPHAGEAL REFLUX DISEASE
     Dosage: UNK
  3. DENOSUMAB [Suspect]
     Indication: OSTEOPOROSIS
     Dosage: UNK, ONCE IN SIX MONTHS

REACTIONS (5)
  - MUSCULAR WEAKNESS [None]
  - BURNING SENSATION [None]
  - PAIN IN EXTREMITY [None]
  - CEREBROVASCULAR ACCIDENT [None]
  - FATIGUE [None]
